FAERS Safety Report 12689612 (Version 9)
Quarter: 2020Q3

REPORT INFORMATION
  Report Type: Report from Study
  Country: JP (occurrence: JP)
  Receive Date: 20160826
  Receipt Date: 20200721
  Transmission Date: 20201102
  Serious: Yes (Hospitalization, Other)
  Sender: FDA-Public Use
  Company Number: JP-VIIV HEALTHCARE LIMITED-JP2016JPN121032

PATIENT
  Age: 42 Year
  Sex: Male

DRUGS (10)
  1. ADOAIR DISKUS [Concomitant]
     Indication: ASTHMA
     Dosage: 250 ?G, BID
  2. ALOSITOL [Concomitant]
     Active Substance: ALLOPURINOL
     Dosage: 100 MG, QD
     Dates: start: 20150708
  3. DOLUTEGRAVIR [Suspect]
     Active Substance: DOLUTEGRAVIR
     Indication: HIV INFECTION
     Dosage: 50 MG, UNK
     Route: 048
     Dates: start: 20140623, end: 20150707
  4. DEPAKENE [Concomitant]
     Active Substance: VALPROIC ACID
     Indication: EPILEPSY
     Dosage: 600 MG, BID
  5. ADOAIR DISKUS [Concomitant]
     Dosage: 250 ?G, QD
     Route: 055
     Dates: start: 20150708, end: 201704
  6. ALOSITOL [Concomitant]
     Active Substance: ALLOPURINOL
     Indication: HYPERURICAEMIA
     Dosage: 100 MG, BID
  7. ABACAVIRSULPHATE+DOLUTEGRAVIR+LAMIVUDINE [Suspect]
     Active Substance: ABACAVIR SULFATE\DOLUTEGRAVIR SODIUM\LAMIVUDINE
     Indication: HIV INFECTION
     Dosage: 1 DF, 1D
     Route: 048
     Dates: start: 20150708
  8. EPZICOM [Suspect]
     Active Substance: ABACAVIR SULFATE\LAMIVUDINE
     Indication: HIV INFECTION
     Dosage: 1 DF, UNK
     Route: 048
     Dates: start: 20120731, end: 20150707
  9. XYZAL [Concomitant]
     Active Substance: LEVOCETIRIZINE DIHYDROCHLORIDE
     Indication: ASTHMA
     Dosage: 5 MG, QD
     Route: 048
  10. METGLUCO [Concomitant]
     Active Substance: METFORMIN HYDROCHLORIDE
     Indication: DIABETES MELLITUS
     Dosage: UNK

REACTIONS (5)
  - Hypertriglyceridaemia [Not Recovered/Not Resolved]
  - Fibula fracture [Recovering/Resolving]
  - Hypertension [Not Recovered/Not Resolved]
  - Dermal cyst [Recovered/Resolved]
  - Type 2 diabetes mellitus [Recovering/Resolving]

NARRATIVE: CASE EVENT DATE: 20150401
